FAERS Safety Report 8906166 (Version 1)
Quarter: 2012Q4

REPORT INFORMATION
  Report Type: Spontaneous
  Country: TW (occurrence: None)
  Receive Date: 20121109
  Receipt Date: 20121109
  Transmission Date: 20130627
  Serious: Yes (Hospitalization, Disabling, Other)
  Sender: FDA-Public Use
  Company Number: 2012P1062171

PATIENT
  Age: 60 Year
  Sex: Male

DRUGS (8)
  1. FAMOTIDINE [Suspect]
     Indication: PEPTIC ULCER
  2. ASPIRIN [Concomitant]
  3. LABETALOL [Concomitant]
  4. NIFEDIPINE [Concomitant]
  5. TERAZOSIN [Concomitant]
  6. METFORMIN [Concomitant]
  7. GLIMEPIRIDE [Concomitant]
  8. ACARBOSE [Concomitant]

REACTIONS (11)
  - Bradyphrenia [None]
  - Muscular weakness [None]
  - Dysarthria [None]
  - Dysphagia [None]
  - Quadriparesis [None]
  - Blood creatine phosphokinase MB increased [None]
  - Leukocytosis [None]
  - Eosinophilia [None]
  - Cerebral infarction [None]
  - Troponin I increased [None]
  - Heart injury [None]
